FAERS Safety Report 15773258 (Version 1)
Quarter: 2018Q4

REPORT INFORMATION
  Report Type: Other
  Country: US (occurrence: US)
  Receive Date: 20181228
  Receipt Date: 20181228
  Transmission Date: 20190205
  Serious: No
  Sender: FDA-Public Use
  Company Number: US-VERASTEM-2018-00084

PATIENT

DRUGS (1)
  1. COPIKTRA [Suspect]
     Active Substance: DUVELISIB
     Indication: EXTRANODAL MARGINAL ZONE B-CELL LYMPHOMA (MALT TYPE)
     Dosage: 25 MG, BID
     Route: 048
     Dates: start: 20181119

REACTIONS (2)
  - Arthralgia [Recovering/Resolving]
  - Product use in unapproved indication [Unknown]

NARRATIVE: CASE EVENT DATE: 20181119
